FAERS Safety Report 4454703-3 (Version None)
Quarter: 2004Q3

REPORT INFORMATION
  Report Type: 
  Country: None (occurrence: None)
  Receive Date: 20040824
  Receipt Date: 20031216
  Transmission Date: 20050211
  Serious: Yes (Life-Threatening, Hospitalization)
  Sender: FDA-Public Use
  Company Number: 2003IC000636

PATIENT
  Age: 63 Year
  Sex: Female
  Weight: 76.4 kg

DRUGS (4)
  1. FLUOROURACIL [Suspect]
     Indication: COLORECTAL CANCER METASTATIC
     Dosage: INTRAVENOUS
     Route: 042
     Dates: start: 20031112, end: 20031116
  2. PTK787/ZK 222584 VS PLACEBO (CODE NOT BROKEN) [Suspect]
     Indication: COLORECTAL CANCER METASTATIC
     Dosage: INTRAVENOUS
     Route: 042
     Dates: start: 20031112, end: 20031116
  3. LEUCOVORIN [Concomitant]
  4. OXALIPLATIN [Concomitant]

REACTIONS (1)
  - ANGINA PECTORIS [None]
